FAERS Safety Report 9928770 (Version 1)
Quarter: 2014Q1

REPORT INFORMATION
  Report Type: Spontaneous
  Country: US (occurrence: None)
  Receive Date: 20140221
  Receipt Date: 20140221
  Transmission Date: 20141002
  Serious: Yes (Death)
  Sender: FDA-Public Use
  Company Number: 2014AP001433

PATIENT
  Age: 48 Year
  Sex: Male

DRUGS (1)
  1. PAROXETINE HCL TABLETS [Suspect]
     Indication: DEPRESSION
     Dates: start: 20090108

REACTIONS (1)
  - Myocardial infarction [None]
